FAERS Safety Report 23329604 (Version 1)
Quarter: 2023Q4

REPORT INFORMATION
  Report Type: Spontaneous
  Country: CN (occurrence: CN)
  Receive Date: 20231222
  Receipt Date: 20231222
  Transmission Date: 20240109
  Serious: Yes (Hospitalization)
  Sender: FDA-Public Use
  Company Number: CN-HALEON-CNCH2023063455

PATIENT

DRUGS (1)
  1. FLUTICASONE PROPIONATE [Suspect]
     Active Substance: FLUTICASONE PROPIONATE
     Indication: Rhinitis
     Dosage: UNK

REACTIONS (4)
  - Drug hypersensitivity [Recovering/Resolving]
  - Nasal oedema [Recovering/Resolving]
  - Skin injury [Recovering/Resolving]
  - Scab [Recovering/Resolving]
